FAERS Safety Report 7663936-4 (Version None)
Quarter: 2011Q3

REPORT INFORMATION
  Report Type: 
  Country: None (occurrence: None)
  Receive Date: 20110805
  Receipt Date: 20100820
  Transmission Date: 20111222
  Serious: No
  Sender: FDA-Public Use
  Company Number: US-ABBOTT-10P-163-0665205-00

PATIENT
  Sex: Female
  Weight: 78.088 kg

DRUGS (10)
  1. LISINOPRIL [Concomitant]
     Indication: PRODUCT USED FOR UNKNOWN INDICATION
  2. FISH OIL [Concomitant]
     Indication: PRODUCT USED FOR UNKNOWN INDICATION
  3. NIASPAN [Suspect]
     Dosage: DOSE INCREASED
  4. NIASPAN [Suspect]
  5. NIASPAN [Suspect]
     Indication: HYPERLIPIDAEMIA
     Dosage: 500MG AT BEDTIME
     Dates: start: 20090301
  6. NIASPAN [Suspect]
     Dosage: DOSE INCREASED
  7. NIASPAN [Suspect]
     Dosage: DOSE INCREASED
  8. NIASPAN [Suspect]
     Dosage: 750MG X 3 AT BEDTIME
  9. MVT [Concomitant]
     Indication: PRODUCT USED FOR UNKNOWN INDICATION
  10. ASPIRIN [Concomitant]
     Indication: PRODUCT USED FOR UNKNOWN INDICATION

REACTIONS (8)
  - ABDOMINAL DISCOMFORT [None]
  - FLUSHING [None]
  - BURNING SENSATION [None]
  - PRURITUS [None]
  - MYALGIA [None]
  - HEADACHE [None]
  - DIARRHOEA [None]
  - DYSPHAGIA [None]
